FAERS Safety Report 17650093 (Version 2)
Quarter: 2020Q2

REPORT INFORMATION
  Report Type: Spontaneous
  Country: US (occurrence: US)
  Receive Date: 20200409
  Receipt Date: 20200522
  Transmission Date: 20200713
  Serious: Yes (Other)
  Sender: FDA-Public Use
  Company Number: US-PFIZER INC-2020144422

PATIENT
  Age: 72 Year
  Sex: Female
  Weight: 85.73 kg

DRUGS (1)
  1. IBRANCE [Suspect]
     Active Substance: PALBOCICLIB
     Indication: BREAST CANCER
     Dosage: 100 MG, CYCLIC (DAILY FOR 21 DAYS AND THEN OFF FOR A WEEK)
     Route: 048
     Dates: start: 20200103

REACTIONS (6)
  - Product colour issue [Unknown]
  - Pulmonary pain [Unknown]
  - Thrombosis [Unknown]
  - Poor quality product administered [Unknown]
  - Neoplasm progression [Unknown]
  - Dyspnoea [Unknown]

NARRATIVE: CASE EVENT DATE: 20200401
